FAERS Safety Report 7469314-5 (Version None)
Quarter: 2011Q2

REPORT INFORMATION
  Report Type: 
  Country: None (occurrence: None)
  Receive Date: 20110510
  Receipt Date: 20110505
  Transmission Date: 20111010
  Serious: Yes (Death)
  Sender: FDA-Public Use
  Company Number: GB-SANOFI-AVENTIS-2011SA027956

PATIENT
  Age: 61 Year
  Sex: Female

DRUGS (3)
  1. OXALIPLATIN [Suspect]
     Indication: COLON CANCER
     Route: 042
     Dates: start: 20100920, end: 20100920
  2. OXALIPLATIN [Suspect]
     Route: 042
     Dates: start: 20101126, end: 20101126
  3. CAPECITABINE [Suspect]
     Route: 048
     Dates: start: 20100920, end: 20101126

REACTIONS (4)
  - VOMITING [None]
  - NAUSEA [None]
  - DIARRHOEA [None]
  - DEHYDRATION [None]
